FAERS Safety Report 7331936-X (Version None)
Quarter: 2011Q1

REPORT INFORMATION
  Report Type: 
  Country: None (occurrence: None)
  Receive Date: 20110304
  Receipt Date: 20100422
  Transmission Date: 20110831
  Serious: Yes (Other)
  Sender: FDA-Public Use
  Company Number: US-PFIZER INC-2009314331

PATIENT
  Sex: Male

DRUGS (6)
  1. DILANTIN [Suspect]
     Indication: CONVULSION
     Dosage: UNK
     Dates: start: 19990101
  2. DILANTIN [Suspect]
     Dosage: 200MG BID ALTERNATING WITH 200MG IN MORNING AND 300MG AT NIGHT
     Dates: start: 20070820
  3. DILANTIN [Suspect]
     Dosage: 200 MG, 2X/DAY
     Dates: start: 20070913, end: 20070919
  4. DILANTIN [Suspect]
     Dosage: 100 MG, 3X/DAY
     Dates: start: 20070124
  5. DILANTIN [Suspect]
     Dosage: 200 MG, 2X/DAY
     Dates: start: 20070629
  6. DILANTIN [Suspect]
     Dosage: 100 MG, 3X/DAY
     Route: 048
     Dates: start: 20080516

REACTIONS (1)
  - STEVENS-JOHNSON SYNDROME [None]
